FAERS Safety Report 6835408-8 (Version None)
Quarter: 2010Q3

REPORT INFORMATION
  Report Type: 
  Country: None (occurrence: None)
  Receive Date: 20100712
  Receipt Date: 20100712
  Transmission Date: 20110219
  Serious: No
  Sender: FDA-Public Use
  Company Number: None

PATIENT
  Sex: Female
  Weight: 56.6996 kg

DRUGS (1)
  1. VOLTAREN [Suspect]
     Indication: ARTHRITIS
     Dosage: ABOUT 2 GRAMS ONCE A DAY RUB ON AREAS
     Dates: start: 20091201, end: 20100601

REACTIONS (4)
  - APPLICATION SITE RASH [None]
  - APPLICATION SITE SWELLING [None]
  - RASH ERYTHEMATOUS [None]
  - RASH PRURITIC [None]
